FAERS Safety Report 8184665-7 (Version None)
Quarter: 2012Q1

REPORT INFORMATION
  Report Type: 
  Country: None (occurrence: None)
  Receive Date: 20120301
  Receipt Date: 20110314
  Transmission Date: 20120608
  Serious: Yes (Other)
  Sender: FDA-Public Use
  Company Number: DKLU1066670

PATIENT
  Age: 33 Year
  Sex: Male

DRUGS (3)
  1. MEPRONIZINE (MEPRONIZINE) [Suspect]
     Indication: PANIC ATTACK
     Dosage: 1 DF DOSAGE FORM, 1 IN 1 D, ORAL
     Route: 048
     Dates: start: 20100101
  2. TRANXENE [Suspect]
     Indication: PANIC ATTACK
     Dosage: 10;5 MG, 3;2 IN 1 D, ORAL
     Route: 048
     Dates: start: 20100101
  3. ESCITALOPRAM [Suspect]
     Indication: PANIC ATTACK
     Dosage: 10 MG, 1 IN 1 D, ORAL
     Route: 048
     Dates: start: 20100101

REACTIONS (2)
  - SPERM ANALYSIS ABNORMAL [None]
  - INFERTILITY MALE [None]
